FAERS Safety Report 20475941 (Version 1)
Quarter: 2022Q1

REPORT INFORMATION
  Report Type: Report from Study
  Country: US (occurrence: US)
  Receive Date: 20220215
  Receipt Date: 20220215
  Transmission Date: 20220423
  Serious: Yes (Other)
  Sender: FDA-Public Use
  Company Number: US-TAKEDA-US202011066

PATIENT
  Age: 76 Year
  Sex: Female
  Weight: 61 kg

DRUGS (19)
  1. LANADELUMAB [Suspect]
     Active Substance: LANADELUMAB
     Indication: Ill-defined disorder
     Dosage: 300 MILLIGRAM, 1X/2WKS
     Route: 042
     Dates: start: 20191205
  2. LANADELUMAB [Suspect]
     Active Substance: LANADELUMAB
     Indication: Gastrooesophageal reflux disease
     Dosage: 300 MILLIGRAM, Q2WEEKS
     Route: 058
  3. LANADELUMAB [Suspect]
     Active Substance: LANADELUMAB
     Indication: Metabolic myopathy
  4. LANADELUMAB [Suspect]
     Active Substance: LANADELUMAB
     Indication: Osteoporosis
  5. LANADELUMAB [Suspect]
     Active Substance: LANADELUMAB
     Indication: Hereditary angioedema
  6. FIRAZYR [Suspect]
     Active Substance: ICATIBANT ACETATE
     Indication: Ill-defined disorder
     Dosage: 30 MILLIGRAM, AS REQ^D
     Route: 042
     Dates: start: 20150116
  7. FIRAZYR [Suspect]
     Active Substance: ICATIBANT ACETATE
     Indication: Ill-defined disorder
     Dosage: 30 MILLIGRAM, AS REQ^D
     Route: 042
     Dates: start: 20150116
  8. FIRAZYR [Suspect]
     Active Substance: ICATIBANT ACETATE
     Indication: Gastrooesophageal reflux disease
     Dosage: 30 MILLIGRAM, AS REQ^D
     Route: 058
     Dates: start: 20120418
  9. FIRAZYR [Suspect]
     Active Substance: ICATIBANT ACETATE
     Indication: Gastrooesophageal reflux disease
     Dosage: 30 MILLIGRAM, AS REQ^D
     Route: 058
     Dates: start: 20120418
  10. FIRAZYR [Suspect]
     Active Substance: ICATIBANT ACETATE
     Indication: Metabolic myopathy
  11. FIRAZYR [Suspect]
     Active Substance: ICATIBANT ACETATE
     Indication: Metabolic myopathy
  12. FIRAZYR [Suspect]
     Active Substance: ICATIBANT ACETATE
     Indication: Osteoporosis
  13. FIRAZYR [Suspect]
     Active Substance: ICATIBANT ACETATE
     Indication: Osteoporosis
  14. EPINEPHRINE [Concomitant]
     Active Substance: EPINEPHRINE
     Indication: Product used for unknown indication
  15. HAEGARDA [Concomitant]
     Active Substance: HUMAN C1-ESTERASE INHIBITOR
     Indication: Product used for unknown indication
  16. METOPROLOL [Concomitant]
     Active Substance: METOPROLOL
     Indication: Product used for unknown indication
  17. MICARDIS [Concomitant]
     Active Substance: TELMISARTAN
     Indication: Product used for unknown indication
  18. PRAVASTATIN [Concomitant]
     Active Substance: PRAVASTATIN
     Indication: Product used for unknown indication
  19. VERAPAMIL [Concomitant]
     Active Substance: VERAPAMIL HYDROCHLORIDE
     Indication: Product used for unknown indication

REACTIONS (3)
  - Neoplasm malignant [Not Recovered/Not Resolved]
  - Hereditary angioedema [Recovered/Resolved]
  - Incorrect route of product administration [Unknown]

NARRATIVE: CASE EVENT DATE: 20200323
